FAERS Safety Report 5352418-0 (Version None)
Quarter: 2007Q2

REPORT INFORMATION
  Report Type: 
  Country: None (occurrence: None)
  Receive Date: 20070611
  Receipt Date: 20070529
  Transmission Date: 20071010
  Serious: Yes (Other)
  Sender: FDA-Public Use
  Company Number: FR-AMGEN-US228282

PATIENT
  Sex: Male

DRUGS (2)
  1. ENBREL [Suspect]
     Indication: RHEUMATOID ARTHRITIS
     Route: 064
     Dates: end: 20040922
  2. PREDNISONE TAB [Concomitant]

REACTIONS (5)
  - 21-HYDROXYLASE DEFICIENCY [None]
  - ADRENOGENITAL SYNDROME [None]
  - DRUG EXPOSURE DURING PREGNANCY [None]
  - ESCHERICHIA URINARY TRACT INFECTION [None]
  - JAUNDICE NEONATAL [None]
